FAERS Safety Report 7937860-3 (Version None)
Quarter: 2011Q4

REPORT INFORMATION
  Report Type: 
  Country: None (occurrence: None)
  Receive Date: 20111123
  Receipt Date: 20111116
  Transmission Date: 20120403
  Serious: Yes (Other)
  Sender: FDA-Public Use
  Company Number: GB-JNJFOC-20111107758

PATIENT
  Age: 24 Year
  Sex: Female

DRUGS (1)
  1. INFLIXIMAB, RECOMBINANT [Suspect]
     Indication: RHEUMATOID ARTHRITIS
     Route: 042

REACTIONS (6)
  - CYANOSIS [None]
  - INFUSION RELATED REACTION [None]
  - APHONIA [None]
  - ANAPHYLACTIC SHOCK [None]
  - NASOPHARYNGITIS [None]
  - PARONYCHIA [None]
